FAERS Safety Report 7200518-2 (Version None)
Quarter: 2010Q4

REPORT INFORMATION
  Report Type: 
  Country: None (occurrence: None)
  Receive Date: 20101228
  Receipt Date: 20101223
  Transmission Date: 20110411
  Serious: Yes (Other)
  Sender: FDA-Public Use
  Company Number: ES-BAXTER-2010BH030743

PATIENT
  Age: 51 Year
  Sex: Female
  Weight: 69 kg

DRUGS (3)
  1. CYCLOPHOSPHAMIDE [Suspect]
     Indication: BREAST CANCER
     Route: 042
     Dates: start: 20101110, end: 20101110
  2. DOCETAXEL [Suspect]
     Indication: BREAST CANCER
     Route: 042
     Dates: start: 20101110, end: 20101110
  3. DOXORUBICIN HCL [Suspect]
     Indication: BREAST CANCER
     Route: 042
     Dates: start: 20101110, end: 20101110

REACTIONS (3)
  - BACK PAIN [None]
  - DYSPNOEA [None]
  - FLUSHING [None]
